FAERS Safety Report 9882663 (Version 1)
Quarter: 2014Q1

REPORT INFORMATION
  Report Type: Spontaneous
  Country: US (occurrence: US)
  Receive Date: 20140207
  Receipt Date: 20140207
  Transmission Date: 20141002
  Serious: Yes (Life-Threatening)
  Sender: FDA-Public Use
  Company Number: CHPA2014US002357

PATIENT
  Sex: Female

DRUGS (1)
  1. THERAFLU DAYTIME SEVERE COLD WARMING SYRUP [Suspect]
     Dosage: UNK
     Route: 048
     Dates: start: 20140205

REACTIONS (5)
  - Feeling abnormal [Unknown]
  - Chest pain [Unknown]
  - Headache [Unknown]
  - Malaise [Unknown]
  - Expired drug administered [Unknown]
